FAERS Safety Report 25594244 (Version 2)
Quarter: 2025Q3

REPORT INFORMATION
  Report Type: Spontaneous
  Country: IN (occurrence: IN)
  Receive Date: 20250723
  Receipt Date: 20250806
  Transmission Date: 20251021
  Serious: Yes (Other)
  Sender: RANBAXY
  Company Number: IN-SUN PHARMACEUTICAL INDUSTRIES INC-2025R1-518354

PATIENT
  Age: 96 Year
  Sex: Male

DRUGS (2)
  1. DULOXETINE [Suspect]
     Active Substance: DULOXETINE
     Indication: Peripheral coldness
     Dosage: 20 MILLIGRAM, DAILY
     Route: 065
     Dates: start: 202308
  2. PREGABALIN [Suspect]
     Active Substance: PREGABALIN
     Indication: Pain in extremity
     Route: 048
     Dates: start: 2009

REACTIONS (5)
  - Neuropsychological symptoms [Recovering/Resolving]
  - Delirium [Recovering/Resolving]
  - Hallucination, visual [Recovering/Resolving]
  - Insomnia [Recovering/Resolving]
  - Extrapyramidal disorder [Recovering/Resolving]

NARRATIVE: CASE EVENT DATE: 20231101
